FAERS Safety Report 5272715-7 (Version None)
Quarter: 2007Q1

REPORT INFORMATION
  Report Type: 
  Country: None (occurrence: None)
  Receive Date: 20070322
  Receipt Date: 20070313
  Transmission Date: 20070707
  Serious: Yes (Other)
  Sender: FDA-Public Use
  Company Number: AU-GLAXOSMITHKLINE-B0462817A

PATIENT
  Sex: Female

DRUGS (1)
  1. NICABATE CQ 2MG LOZENGE [Suspect]
     Dosage: 15LOZ PER DAY
     Route: 002
     Dates: start: 20060101

REACTIONS (2)
  - DEPENDENCE [None]
  - INCORRECT DOSE ADMINISTERED [None]
